FAERS Safety Report 7820002-2 (Version None)
Quarter: 2011Q4

REPORT INFORMATION
  Report Type: 
  Country: None (occurrence: None)
  Receive Date: 20111018
  Receipt Date: 20111014
  Transmission Date: 20120403
  Serious: Yes (Other)
  Sender: FDA-Public Use
  Company Number: US-PFIZER INC-2010132611

PATIENT

DRUGS (2)
  1. ZOLOFT [Suspect]
     Dosage: 100 MG (1/2 AM AND 1/2 PM), UNK
  2. LIPITOR [Suspect]
     Dosage: 80MG, DAILY

REACTIONS (2)
  - DEPRESSION [None]
  - ANXIETY [None]
